FAERS Safety Report 26007403 (Version 1)
Quarter: 2025Q4

REPORT INFORMATION
  Report Type: Report from Study
  Country: US (occurrence: US)
  Receive Date: 20251106
  Receipt Date: 20251106
  Transmission Date: 20260117
  Serious: Yes (Other)
  Sender: MALLINCKRODT
  Company Number: US-MALLINCKRODT-MNK202506729

PATIENT
  Sex: Female

DRUGS (2)
  1. CORTICOTROPIN [Suspect]
     Active Substance: CORTICOTROPIN
     Indication: Orbital myositis
     Dosage: UNKNOWN
  2. PNEUMOCOCCAL VACCINE NOS [Concomitant]
     Active Substance: PNEUMOCOCCAL VACCINE
     Dosage: UNKNOWN

REACTIONS (5)
  - Endocrine ophthalmopathy [Unknown]
  - Visual impairment [Unknown]
  - Back pain [Unknown]
  - Arthralgia [Unknown]
  - Intraocular pressure increased [Recovered/Resolved]
